FAERS Safety Report 14967260 (Version 1)
Quarter: 2018Q2

REPORT INFORMATION
  Report Type: Report from Study
  Country: IT (occurrence: IT)
  Receive Date: 20180604
  Receipt Date: 20180604
  Transmission Date: 20180711
  Serious: Yes (Other)
  Sender: FDA-Public Use
  Company Number: IT-CHEPLA-C20170694_A

PATIENT

DRUGS (2)
  1. ARSENIC TRIOXIDE [Suspect]
     Active Substance: ARSENIC TRIOXIDE
     Indication: ACUTE PROMYELOCYTIC LEUKAEMIA
  2. ATRA [Suspect]
     Active Substance: TRETINOIN
     Indication: ACUTE PROMYELOCYTIC LEUKAEMIA

REACTIONS (9)
  - Acute promyelocytic leukaemia differentiation syndrome [Unknown]
  - Herpes virus infection [Unknown]
  - Hepatotoxicity [Unknown]
  - Leukaemia recurrent [Recovered/Resolved]
  - Herpes simplex [Unknown]
  - Idiopathic intracranial hypertension [Unknown]
  - Thrombosis [Unknown]
  - Myopathy [Unknown]
  - Electrocardiogram QT prolonged [Unknown]
